FAERS Safety Report 10244272 (Version 1)
Quarter: 2014Q2

REPORT INFORMATION
  Report Type: Spontaneous
  Country: FR (occurrence: None)
  Receive Date: 20140616
  Receipt Date: 20140616
  Transmission Date: 20141212
  Serious: Yes (Other)
  Sender: FDA-Public Use
  Company Number: CLINIGEN-003409

PATIENT
  Sex: Female
  Weight: 45 kg

DRUGS (1)
  1. FOSCAVIR (FOSCAVIR) 6 MG [Suspect]
     Dosage: TOTAL
     Dates: start: 20140521, end: 20140521

REACTIONS (1)
  - Accidental overdose [None]
